FAERS Safety Report 12672091 (Version 1)
Quarter: 2016Q3

REPORT INFORMATION
  Report Type: Spontaneous
  Country: US (occurrence: US)
  Receive Date: 20160822
  Receipt Date: 20160822
  Transmission Date: 20161109
  Serious: No
  Sender: FDA-Public Use
  Company Number: US-BAYER-2016-161781

PATIENT
  Age: 75 Year
  Sex: Female
  Weight: 53.52 kg

DRUGS (2)
  1. ALEVE [Suspect]
     Active Substance: NAPROXEN SODIUM
     Indication: BACK PAIN
     Dosage: 2 DF, QD
     Route: 048
     Dates: start: 201601
  2. ADVIL [Concomitant]
     Active Substance: IBUPROFEN
     Dosage: 5 DF, QD SOMETIMES

REACTIONS (3)
  - Drug ineffective [Unknown]
  - Product use issue [Unknown]
  - Device ineffective [Unknown]

NARRATIVE: CASE EVENT DATE: 201601
